FAERS Safety Report 16820324 (Version 2)
Quarter: 2020Q2

REPORT INFORMATION
  Report Type: Report from Study
  Country: CO (occurrence: CO)
  Receive Date: 20190918
  Receipt Date: 20200506
  Transmission Date: 20200713
  Serious: Yes (Death)
  Sender: FDA-Public Use
  Company Number: CO-ROCHE-2406128

PATIENT
  Sex: Male
  Weight: 42 kg

DRUGS (7)
  1. EZETIMIBE. [Concomitant]
     Active Substance: EZETIMIBE
  2. ROSUVASTATIN. [Concomitant]
     Active Substance: ROSUVASTATIN
  3. VASTAREL [Concomitant]
     Active Substance: TRIMETAZIDINE DIHYDROCHLORIDE
  4. GAZYVA [Suspect]
     Active Substance: OBINUTUZUMAB
     Indication: CHRONIC LYMPHOCYTIC LEUKAEMIA
     Route: 042
     Dates: start: 201901
  5. AMIODARONE [Concomitant]
     Active Substance: AMIODARONE
  6. HALOPERIDOL. [Concomitant]
     Active Substance: HALOPERIDOL
  7. ACETYLSALICYLIC ACID [Concomitant]
     Active Substance: ASPIRIN

REACTIONS (4)
  - Large intestine infection [Fatal]
  - Colitis [Fatal]
  - Pneumonia [Fatal]
  - Constipation [Recovering/Resolving]
